FAERS Safety Report 15214195 (Version 2)
Quarter: 2018Q4

REPORT INFORMATION
  Report Type: Spontaneous
  Country: FR (occurrence: FR)
  Receive Date: 20180730
  Receipt Date: 20181011
  Transmission Date: 20190204
  Serious: Yes (Hospitalization, Congenital Anomaly)
  Sender: FDA-Public Use
  Company Number: PHHY2018FR053319

PATIENT

DRUGS (9)
  1. SERTRALINE [Suspect]
     Active Substance: SERTRALINE HYDROCHLORIDE
     Indication: FOETAL EXPOSURE DURING PREGNANCY
     Dosage: UNK
     Route: 064
  2. PAROXETINE. [Suspect]
     Active Substance: PAROXETINE
     Indication: FOETAL EXPOSURE DURING PREGNANCY
     Dosage: UNK
     Route: 064
  3. PAROXETINE. [Suspect]
     Active Substance: PAROXETINE
     Indication: DEPRESSION
  4. TANGANIL [Suspect]
     Active Substance: ACETYLLEUCINE
     Indication: FOETAL EXPOSURE DURING PREGNANCY
     Route: 064
  5. RITALINE [Suspect]
     Active Substance: METHYLPHENIDATE HYDROCHLORIDE
     Indication: PRODUCT USED FOR UNKNOWN INDICATION
  6. RITALINE [Suspect]
     Active Substance: METHYLPHENIDATE HYDROCHLORIDE
     Indication: FOETAL EXPOSURE DURING PREGNANCY
     Dosage: UNK
     Route: 064
  7. TANGANIL [Suspect]
     Active Substance: ACETYLLEUCINE
     Indication: PRODUCT USED FOR UNKNOWN INDICATION
  8. ACIDE TIAPROFENIQUE [Suspect]
     Active Substance: TIAPROFENIC ACID
     Indication: PRODUCT USED FOR UNKNOWN INDICATION
  9. ACIDE TIAPROFENIQUE [Suspect]
     Active Substance: TIAPROFENIC ACID
     Indication: FOETAL EXPOSURE DURING PREGNANCY
     Route: 064

REACTIONS (2)
  - Heart disease congenital [Not Recovered/Not Resolved]
  - Carotid sinus syndrome [Not Recovered/Not Resolved]

NARRATIVE: CASE EVENT DATE: 20180423
